FAERS Safety Report 25388015 (Version 1)
Quarter: 2025Q2

REPORT INFORMATION
  Report Type: Spontaneous
  Country: FR (occurrence: FR)
  Receive Date: 20250603
  Receipt Date: 20250603
  Transmission Date: 20250717
  Serious: Yes (Death, Life-Threatening, Hospitalization, Other)
  Sender: AUROBINDO
  Company Number: FR-MLMSERVICE-20211224-3289385-1

PATIENT
  Age: 58 Year
  Sex: Male

DRUGS (2)
  1. OFLOXACIN [Suspect]
     Active Substance: OFLOXACIN
     Indication: Urinary tract infection
     Route: 065
     Dates: start: 2013
  2. PIPERACILLIN AND TAZOBACTAM [Suspect]
     Active Substance: PIPERACILLIN SODIUM\TAZOBACTAM SODIUM
     Indication: Urinary tract infection
     Route: 065
     Dates: start: 2013

REACTIONS (9)
  - Aspergillus infection [Fatal]
  - Septic shock [Fatal]
  - Fungal endocarditis [Fatal]
  - Pneumonia [Fatal]
  - Acute kidney injury [Fatal]
  - Atrioventricular block complete [Fatal]
  - Hypotension [Fatal]
  - Cardiac arrest [Recovered/Resolved]
  - Bradycardia [Unknown]

NARRATIVE: CASE EVENT DATE: 20130101
